FAERS Safety Report 12575987 (Version 17)
Quarter: 2018Q2

REPORT INFORMATION
  Report Type: Report from Study
  Country: US (occurrence: US)
  Receive Date: 20160720
  Receipt Date: 20180627
  Transmission Date: 20180711
  Serious: Yes (Hospitalization, Disabling, Other)
  Sender: FDA-Public Use
  Company Number: US-INCYTE CORPORATION-2015IN003969

PATIENT

DRUGS (29)
  1. JAKAFI [Suspect]
     Active Substance: RUXOLITINIB
     Dosage: 10 MG, BID
     Route: 048
  2. RAMIPRIL. [Concomitant]
     Active Substance: RAMIPRIL
     Indication: HYPERTENSION
     Dosage: 10 MG, QD
     Route: 065
     Dates: start: 20150302
  3. RED YEAST RICE WITH PLANT STEROLS [Concomitant]
     Indication: PRODUCT USED FOR UNKNOWN INDICATION
     Dosage: UNK
     Route: 065
  4. PNEUMOVAX 23 [Concomitant]
     Active Substance: PNEUMOCOCCAL VACCINE, POLYVALENT 23
     Indication: PRODUCT USED FOR UNKNOWN INDICATION
     Dosage: UNK
     Route: 065
  5. FLECAINIDE [Concomitant]
     Active Substance: FLECAINIDE
     Indication: PRODUCT USED FOR UNKNOWN INDICATION
     Dosage: UNK
     Route: 065
  6. VIAGRA [Concomitant]
     Active Substance: SILDENAFIL CITRATE
     Indication: ERECTILE DYSFUNCTION
     Dosage: 50 MG, PRN
     Route: 048
     Dates: start: 20150330
  7. FLUZONE                            /00780601/ [Concomitant]
     Active Substance: FLUCONAZOLE
     Indication: PRODUCT USED FOR UNKNOWN INDICATION
     Dosage: UNK
     Route: 065
  8. SYNTHROID [Concomitant]
     Active Substance: LEVOTHYROXINE SODIUM
     Indication: HYPOTHYROIDISM
     Dosage: 100 UG, QD
     Route: 048
     Dates: start: 20130604, end: 20140720
  9. CARAFATE [Concomitant]
     Active Substance: SUCRALFATE
     Indication: DIARRHOEA
  10. FLUVIRIN                           /01389801/ [Concomitant]
     Active Substance: INFLUENZA VIRUS VACCINE
     Indication: PRODUCT USED FOR UNKNOWN INDICATION
     Dosage: UNK
     Route: 065
  11. LEVAQUIN [Concomitant]
     Active Substance: LEVOFLOXACIN
     Indication: SINUS CONGESTION
     Dosage: 500 MG, QD
     Route: 065
     Dates: start: 20160825, end: 20170228
  12. ASPIRIN. [Concomitant]
     Active Substance: ASPIRIN
     Indication: POLYCYTHAEMIA VERA
     Dosage: 81 MG, BID
     Route: 065
     Dates: start: 20121115
  13. SYNTHROID [Concomitant]
     Active Substance: LEVOTHYROXINE SODIUM
     Dosage: 88 UG, QD
     Route: 048
     Dates: start: 20140721
  14. AMLODIPINE [Concomitant]
     Active Substance: AMLODIPINE BESYLATE
     Indication: HYPERTENSION
     Dosage: 2.5 MG, BID
     Route: 048
     Dates: start: 20130816
  15. MILK THISTLE PLUS                  /08512201/ [Concomitant]
     Indication: PRODUCT USED FOR UNKNOWN INDICATION
     Dosage: UNK
     Route: 065
  16. CARAFATE [Concomitant]
     Active Substance: SUCRALFATE
     Indication: ABDOMINAL PAIN LOWER
     Dosage: 1 G, Q6H
     Route: 048
     Dates: start: 20160114
  17. AMOXICILLIN. [Concomitant]
     Active Substance: AMOXICILLIN
     Indication: PRODUCT USED FOR UNKNOWN INDICATION
     Dosage: UNK
     Route: 065
  18. JAKAFI [Suspect]
     Active Substance: RUXOLITINIB
     Indication: POLYCYTHAEMIA VERA
     Dosage: 20 MG, BID
     Route: 048
  19. JAKAFI [Suspect]
     Active Substance: RUXOLITINIB
     Dosage: 10 MG, BID
     Route: 048
     Dates: start: 20140102
  20. JAKAFI [Suspect]
     Active Substance: RUXOLITINIB
     Dosage: 10 MG, BID
     Route: 048
  21. JAKAFI [Suspect]
     Active Substance: RUXOLITINIB
     Dosage: 10 MG, BID
     Route: 048
     Dates: end: 20171215
  22. MULTIVITAMIN                       /00097801/ [Concomitant]
     Active Substance: VITAMINS
     Indication: PRODUCT USED FOR UNKNOWN INDICATION
     Dosage: UNK
     Route: 065
  23. VITAMIN B12 [Concomitant]
     Active Substance: CYANOCOBALAMIN
     Indication: VITAMIN B COMPLEX DEFICIENCY
     Dosage: 1000 MCG/ML EVERY WEEK
     Route: 065
     Dates: start: 20170130
  24. XARELTO [Concomitant]
     Active Substance: RIVAROXABAN
     Indication: CEREBROVASCULAR ACCIDENT PROPHYLAXIS
     Dosage: 10 MG, QD
     Route: 065
     Dates: start: 20140404, end: 20160225
  25. GARLIC                             /01570501/ [Concomitant]
     Active Substance: GARLIC
     Indication: PRODUCT USED FOR UNKNOWN INDICATION
     Dosage: UNK
     Route: 065
  26. JAKAFI [Suspect]
     Active Substance: RUXOLITINIB
     Dosage: 10 MG, BID
     Route: 048
     Dates: start: 20150102, end: 20180106
  27. JAKAFI [Suspect]
     Active Substance: RUXOLITINIB
     Dosage: 10 MG, QD
     Route: 048
     Dates: end: 20180106
  28. XARELTO [Concomitant]
     Active Substance: RIVAROXABAN
     Dosage: 15 MG, QD
     Dates: start: 20160226
  29. METOPROLOL SUCCINATE. [Concomitant]
     Active Substance: METOPROLOL SUCCINATE
     Indication: HYPERTENSION
     Dosage: 100 MG, QD
     Route: 048
     Dates: start: 20121115

REACTIONS (30)
  - Cerebrovascular accident [Recovered/Resolved]
  - Eructation [Not Recovered/Not Resolved]
  - Gait inability [Unknown]
  - Drug dose omission [Unknown]
  - Palpitations [Not Recovered/Not Resolved]
  - Diarrhoea [Recovered/Resolved]
  - Localised oedema [Not Recovered/Not Resolved]
  - Peripheral artery thrombosis [Recovered/Resolved]
  - Abdominal distension [Unknown]
  - Dysphonia [Recovered/Resolved]
  - Contusion [Not Recovered/Not Resolved]
  - Peripheral embolism [Recovered/Resolved]
  - Abdominal discomfort [Recovered/Resolved]
  - Vision blurred [Recovering/Resolving]
  - Gastrointestinal disorder [Unknown]
  - Colitis [Not Recovered/Not Resolved]
  - Dry mouth [Not Recovered/Not Resolved]
  - Decreased appetite [Not Recovered/Not Resolved]
  - Nausea [Not Recovered/Not Resolved]
  - Transient ischaemic attack [Recovered/Resolved with Sequelae]
  - Vitreous haemorrhage [Recovered/Resolved]
  - Pain in extremity [Recovered/Resolved]
  - Infarction [Recovered/Resolved with Sequelae]
  - Vomiting [Unknown]
  - Pollakiuria [Unknown]
  - Tinnitus [Recovered/Resolved]
  - Burning sensation [Recovered/Resolved]
  - Sinus congestion [Not Recovered/Not Resolved]
  - Splenomegaly [Not Recovered/Not Resolved]
  - Abdominal pain [Not Recovered/Not Resolved]

NARRATIVE: CASE EVENT DATE: 20150407
